FAERS Safety Report 20196098 (Version 2)
Quarter: 2022Q1

REPORT INFORMATION
  Report Type: Spontaneous
  Country: CZ (occurrence: CZ)
  Receive Date: 20211216
  Receipt Date: 20220204
  Transmission Date: 20220423
  Serious: Yes (Death, Other)
  Sender: FDA-Public Use
  Company Number: CZ-PFIZER INC-202101728598

PATIENT
  Age: 62 Year
  Sex: Male

DRUGS (13)
  1. MYLOTARG [Suspect]
     Active Substance: GEMTUZUMAB OZOGAMICIN
     Indication: Acute myeloid leukaemia
     Dosage: 1ST INDUCTION, 5 MG, INTRAVENOUSLY
     Route: 042
     Dates: start: 20201218, end: 20201218
  2. MYLOTARG [Suspect]
     Active Substance: GEMTUZUMAB OZOGAMICIN
     Dosage: 1ST INDUCTION, 5 MG, INTRAVENOUSLY
     Route: 042
     Dates: start: 20201221, end: 20201221
  3. MYLOTARG [Suspect]
     Active Substance: GEMTUZUMAB OZOGAMICIN
     Dosage: 1ST INDUCTION, 5 MG, INTRAVENOUSLY
     Route: 042
     Dates: start: 20201224, end: 20201224
  4. MYLOTARG [Suspect]
     Active Substance: GEMTUZUMAB OZOGAMICIN
     Dosage: 1ST CONSOLIDATION, 5 MG, INTRAVENOUSLY
     Route: 042
     Dates: start: 20210129, end: 20210129
  5. MYLOTARG [Suspect]
     Active Substance: GEMTUZUMAB OZOGAMICIN
     Dosage: 2ND CONSOLIDATION, 5 MG, INTRAVENOUSLY
     Route: 042
     Dates: start: 20210318, end: 20210318
  6. DAUNORUBICIN [Concomitant]
     Active Substance: DAUNORUBICIN
     Dosage: 1ST INDUCTION 3 (DAUNORUICIN 60 MG/M2)
     Dates: start: 20201218, end: 20201224
  7. DAUNORUBICIN [Concomitant]
     Active Substance: DAUNORUBICIN
     Dosage: 1ST CONSOLIDATION DAY 1 DAUNORUBICIN 60 MG/M2)
     Dates: start: 20210129, end: 20210129
  8. DAUNORUBICIN [Concomitant]
     Active Substance: DAUNORUBICIN
     Dosage: 2ND CONSOLIDATION DAY 1 DAUNORUBICIN 60 MG/M2)
     Dates: start: 20210318, end: 20210318
  9. CYTARABINE [Concomitant]
     Active Substance: CYTARABINE
     Dosage: 1ST INDUCTION 7 (CYTARABINE 200 MG/M2)
     Dates: start: 20201218, end: 20201224
  10. CYTARABINE [Concomitant]
     Active Substance: CYTARABINE
     Dosage: 1ST CONSOLIDATION CYTARABINE 1000 MG/M2
     Dates: start: 20210129, end: 20210201
  11. RYDAPT [Concomitant]
     Active Substance: MIDOSTAURIN
     Dosage: 1ST INDUCTION , 50 MG, 2X/DAY, DAY 8 - 21
     Dates: start: 20201225, end: 20210110
  12. RYDAPT [Concomitant]
     Active Substance: MIDOSTAURIN
     Dosage: 1ST CONSOLIDATION, 50 MG, 2X/DAY, DAY 8 - 21
     Dates: start: 20210205, end: 20210218
  13. RYDAPT [Concomitant]
     Active Substance: MIDOSTAURIN
     Dosage: 2ND CONSOLIDATION, 50 MG, 2X/DAY, DAY 8 - 21
     Dates: start: 20210325, end: 20210407

REACTIONS (2)
  - Complications of transplant surgery [Fatal]
  - COVID-19 pneumonia [Recovered/Resolved]

NARRATIVE: CASE EVENT DATE: 20201230
